FAERS Safety Report 8324716-X (Version None)
Quarter: 2012Q2

REPORT INFORMATION
  Report Type: 
  Country: None (occurrence: None)
  Receive Date: 20120501
  Receipt Date: 20120423
  Transmission Date: 20120825
  Serious: Yes (Other)
  Sender: FDA-Public Use
  Company Number: US-US-EMD SERONO, INC.-7128628

PATIENT
  Sex: Female

DRUGS (1)
  1. REBIF [Suspect]
     Indication: PRODUCT USED FOR UNKNOWN INDICATION
     Route: 058
     Dates: start: 20090330

REACTIONS (4)
  - BURNING SENSATION [None]
  - EPSTEIN-BARR VIRUS INFECTION [None]
  - LYME DISEASE [None]
  - INJECTION SITE HAEMATOMA [None]
